FAERS Safety Report 19426032 (Version 1)
Quarter: 2021Q2

REPORT INFORMATION
  Report Type: Spontaneous
  Country: FR (occurrence: FR)
  Receive Date: 20210616
  Receipt Date: 20210616
  Transmission Date: 20210717
  Serious: Yes (Life-Threatening, Other)
  Sender: FDA-Public Use
  Company Number: FR-SA-2021SA199372

PATIENT
  Age: 82 Year
  Sex: Female

DRUGS (2)
  1. SPASFON [PHLOROGLUCINOL] [Concomitant]
     Active Substance: PHLOROGLUCINOL
     Dosage: UNK
     Route: 065
  2. LOVENOX [Suspect]
     Active Substance: ENOXAPARIN SODIUM
     Dosage: 6000 UIU, BID
     Route: 065
     Dates: end: 20210608

REACTIONS (5)
  - Insomnia [Recovering/Resolving]
  - Bladder pain [Recovering/Resolving]
  - Unevaluable event [Unknown]
  - Drug intolerance [Unknown]
  - Bone pain [Recovering/Resolving]
